FAERS Safety Report 5939466-4 (Version None)
Quarter: 2008Q4

REPORT INFORMATION
  Report Type: 
  Country: None (occurrence: None)
  Receive Date: 20081029
  Receipt Date: 20050708
  Transmission Date: 20090506
  Serious: Yes (Hospitalization, Other)
  Sender: FDA-Public Use
  Company Number: 0510012

PATIENT
  Age: 3 Year
  Sex: Female
  Weight: 14.1 kg

DRUGS (1)
  1. ORFADIN [Suspect]
     Indication: TYROSINAEMIA
     Dosage: 15 MG, 1 IN 1 D, ORAL
     Route: 048
     Dates: start: 20040313, end: 20050901

REACTIONS (4)
  - ALPHA 1 FOETOPROTEIN INCREASED [None]
  - DRUG INEFFECTIVE [None]
  - HEPATIC CIRRHOSIS [None]
  - LIVER TRANSPLANT [None]
